FAERS Safety Report 12498796 (Version 1)
Quarter: 2016Q2

REPORT INFORMATION
  Report Type: Spontaneous
  Country: US (occurrence: US)
  Receive Date: 20160627
  Receipt Date: 20160627
  Transmission Date: 20160815
  Serious: No
  Sender: FDA-Public Use
  Company Number: US-TAKEDA-2016TUS010443

PATIENT
  Sex: Female

DRUGS (1)
  1. COLCRYS [Suspect]
     Active Substance: COLCHICINE
     Indication: SYSTEMIC LUPUS ERYTHEMATOSUS
     Dosage: 0.6 MG, BID
     Route: 048
     Dates: start: 2001, end: 20160614

REACTIONS (4)
  - Off label use [Recovered/Resolved]
  - Lacrimation increased [Unknown]
  - Ocular hyperaemia [Unknown]
  - Drug dose omission [Unknown]

NARRATIVE: CASE EVENT DATE: 2001
